FAERS Safety Report 23504820 (Version 1)
Quarter: 2024Q1

REPORT INFORMATION
  Report Type: Spontaneous
  Country: US (occurrence: US)
  Receive Date: 20240209
  Receipt Date: 20240209
  Transmission Date: 20240410
  Serious: Yes (Hospitalization)
  Sender: FDA-Public Use
  Company Number: US-Amarin Pharma  Inc-2024AMR000042

PATIENT
  Age: 72 Year
  Sex: Female

DRUGS (1)
  1. VASCEPA [Suspect]
     Active Substance: ICOSAPENT ETHYL
     Indication: Blood triglycerides increased
     Route: 048

REACTIONS (8)
  - Hospitalisation [Unknown]
  - Abdominal pain upper [Unknown]
  - Abnormal faeces [Unknown]
  - Intentional underdose [Unknown]
  - Treatment noncompliance [Unknown]
  - Product physical issue [Unknown]
  - Product colour issue [Unknown]
  - Product odour abnormal [Unknown]
